FAERS Safety Report 9850544 (Version 1)
Quarter: 2013Q4

REPORT INFORMATION
  Report Type: Spontaneous
  Country: US (occurrence: None)
  Receive Date: 20131226
  Receipt Date: 20131226
  Transmission Date: 20140711
  Serious: Yes (Hospitalization, Disabling)
  Sender: FDA-Public Use
  Company Number: PHEH2012US009892

PATIENT
  Age: 84 Year
  Sex: Male
  Weight: 100 kg

DRUGS (5)
  1. AFINITOR (RAD) TABLET, 10MG [Suspect]
     Indication: PANCREATIC NEUROENDOCRINE TUMOUR METASTATIC
     Route: 048
     Dates: start: 20111206, end: 20120201
  2. COZAAR (LOSARTAN POTASSIUM) (50 MILLIGRAM, TABLETS) (LOSARTAN POTASSIUM) [Concomitant]
  3. LASIX (FUROSEMIDE) [Concomitant]
  4. SIMVASTATIN (SIMVASTATIN) [Concomitant]
  5. PRILOSEC (OMPERAZOLE) [Concomitant]

REACTIONS (3)
  - Pneumonitis [None]
  - Dyspnoea [None]
  - Cough [None]
